FAERS Safety Report 25240819 (Version 2)
Quarter: 2025Q2

REPORT INFORMATION
  Report Type: Spontaneous
  Country: US (occurrence: US)
  Receive Date: 20250425
  Receipt Date: 20250425
  Transmission Date: 20250716
  Serious: Yes (Other)
  Sender: AMGEN
  Company Number: US-AMGEN-USASP2025076945

PATIENT
  Age: 60 Year
  Sex: Female

DRUGS (5)
  1. AFLIBERCEPT [Suspect]
     Active Substance: AFLIBERCEPT
     Indication: Vasoproliferative retinal tumour
  2. AFLIBERCEPT [Suspect]
     Active Substance: AFLIBERCEPT
     Indication: Cystoid macular oedema
  3. PREDNISOLONE [Concomitant]
     Active Substance: PREDNISOLONE
  4. KETOROLAC [Concomitant]
     Active Substance: KETOROLAC TROMETHAMINE
  5. DEXAMETHASONE [Concomitant]
     Active Substance: DEXAMETHASONE
     Indication: Vasoproliferative retinal tumour

REACTIONS (5)
  - Cystoid macular oedema [Unknown]
  - Epiretinal membrane [Unknown]
  - Vitreous adhesions [Unknown]
  - Drug ineffective for unapproved indication [Unknown]
  - Off label use [Unknown]
